FAERS Safety Report 9257366 (Version 4)
Quarter: 2013Q3

REPORT INFORMATION
  Report Type: Spontaneous
  Country: IE (occurrence: IE)
  Receive Date: 20130426
  Receipt Date: 20130917
  Transmission Date: 20140515
  Serious: Yes (Hospitalization, Disabling, Other)
  Sender: FDA-Public Use
  Company Number: IE-ROCHE-1218839

PATIENT
  Sex: Female

DRUGS (2)
  1. LUCENTIS [Suspect]
     Indication: AGE-RELATED MACULAR DEGENERATION
     Route: 050
     Dates: start: 20081202
  2. LUCENTIS [Suspect]
     Route: 050
     Dates: start: 20130416

REACTIONS (2)
  - Optic neuritis [Unknown]
  - Endophthalmitis [Recovered/Resolved]
